FAERS Safety Report 5016054-8 (Version None)
Quarter: 2006Q2

REPORT INFORMATION
  Report Type: 
  Country: None (occurrence: None)
  Receive Date: 20060601
  Receipt Date: 20060313
  Transmission Date: 20061013
  Serious: Yes (Congenital Anomaly)
  Sender: FDA-Public Use
  Company Number: US-BOEHRINGER INGELHEIM PHARMACEUTICALS, INC.-2006-BP-05832BP

PATIENT

DRUGS (5)
  1. VIRAMUNE [Suspect]
     Indication: RETROVIRAL INFECTION
     Route: 015
     Dates: start: 20040601, end: 20051208
  2. VIRAMUNE [Suspect]
     Route: 015
     Dates: start: 20051219
  3. VIDEX [Suspect]
     Indication: RETROVIRAL INFECTION
     Route: 015
     Dates: start: 20040601
  4. EPIVIR [Suspect]
     Indication: RETROVIRAL INFECTION
     Route: 015
     Dates: start: 20040601
  5. KALETRA [Suspect]
     Indication: RETROVIRAL INFECTION
     Route: 015
     Dates: start: 20051208, end: 20051219

REACTIONS (2)
  - DRUG EXPOSURE DURING PREGNANCY [None]
  - TRISOMY 21 [None]
